FAERS Safety Report 9281071 (Version 2)
Quarter: 2013Q2

REPORT INFORMATION
  Report Type: Report from Study
  Country: GB (occurrence: GB)
  Receive Date: 20130509
  Receipt Date: 20130617
  Transmission Date: 20140414
  Serious: Yes (Hospitalization)
  Sender: FDA-Public Use
  Company Number: GB-ROCHE-1221859

PATIENT
  Age: 86 Year
  Sex: Male

DRUGS (2)
  1. RANIBIZUMAB [Suspect]
     Indication: AGE-RELATED MACULAR DEGENERATION
     Dosage: LAST DOSE PRIOR TO SAE ON 20/APR/2013
     Route: 050
     Dates: start: 20120311
  2. RANIBIZUMAB [Suspect]
     Route: 050
     Dates: start: 20130420, end: 20130420

REACTIONS (1)
  - Adenocarcinoma gastric [Not Recovered/Not Resolved]
